FAERS Safety Report 7707787-0 (Version None)
Quarter: 2011Q3

REPORT INFORMATION
  Report Type: 
  Country: None (occurrence: None)
  Receive Date: 20110824
  Receipt Date: 20110725
  Transmission Date: 20111222
  Serious: No
  Sender: FDA-Public Use
  Company Number: US-BAYER-2011-067085

PATIENT
  Sex: Female

DRUGS (4)
  1. BENTYL [Concomitant]
  2. IBUPROFEN [Concomitant]
  3. ALEVE (CAPLET) [Suspect]
     Indication: DYSMENORRHOEA
  4. TYLENOL W/ CODEINE NO. 3 [Concomitant]

REACTIONS (1)
  - DYSMENORRHOEA [None]
